FAERS Safety Report 7563167-2 (Version None)
Quarter: 2011Q2

REPORT INFORMATION
  Report Type: 
  Country: None (occurrence: None)
  Receive Date: 20110622
  Receipt Date: 20110606
  Transmission Date: 20111010
  Serious: No
  Sender: FDA-Public Use
  Company Number: US-B.I. PHARMACEUTICALS,INC./RIDGEFIELD-2011-BP-14788BP

PATIENT
  Age: 61 Year
  Sex: Female

DRUGS (2)
  1. COMBIVENT [Suspect]
     Indication: CHRONIC OBSTRUCTIVE PULMONARY DISEASE
     Route: 055
     Dates: start: 20100101
  2. COMBIVENT [Suspect]
     Indication: ASTHMA

REACTIONS (3)
  - NASOPHARYNGITIS [None]
  - COUGH [None]
  - INSOMNIA [None]
